FAERS Safety Report 25033309 (Version 1)
Quarter: 2025Q1

REPORT INFORMATION
  Report Type: Spontaneous
  Country: RU (occurrence: RU)
  Receive Date: 20250303
  Receipt Date: 20250303
  Transmission Date: 20250408
  Serious: Yes (Other)
  Sender: ELI LILLY AND COMPANY
  Company Number: RU-ELI_LILLY_AND_COMPANY-RU202502021935

PATIENT
  Age: 65 Year
  Sex: Female

DRUGS (10)
  1. HUMALOG [Suspect]
     Active Substance: INSULIN LISPRO
     Indication: Type 2 diabetes mellitus
     Route: 058
     Dates: start: 20241106, end: 20241106
  2. APIDRA SOLOSTAR [Suspect]
     Active Substance: INSULIN GLULISINE
     Indication: Type 2 diabetes mellitus
     Route: 058
     Dates: start: 20241106, end: 20241108
  3. METFORMIN HYDROCHLORIDE [Concomitant]
     Active Substance: METFORMIN HYDROCHLORIDE
     Indication: Type 2 diabetes mellitus
     Route: 065
     Dates: start: 2021, end: 2024
  4. BISOPROLOL FUMARATE [Concomitant]
     Active Substance: BISOPROLOL FUMARATE
     Indication: Hypertonia
     Route: 065
     Dates: start: 2020, end: 2024
  5. EMPAGLIFLOZIN [Concomitant]
     Active Substance: EMPAGLIFLOZIN
     Indication: Type 2 diabetes mellitus
     Route: 065
     Dates: start: 2021, end: 2024
  6. DEPRENORM MV [Concomitant]
     Indication: Myocardial ischaemia
     Route: 065
     Dates: start: 2023, end: 2024
  7. DIOVAN [Concomitant]
     Active Substance: VALSARTAN
     Indication: Hypertonia
     Route: 065
     Dates: start: 2020, end: 2024
  8. XARELTO [Concomitant]
     Active Substance: RIVAROXABAN
     Indication: Type 2 diabetes mellitus
     Route: 065
     Dates: start: 2024, end: 2024
  9. TOUJEO [Concomitant]
     Active Substance: INSULIN GLARGINE
     Indication: Type 2 diabetes mellitus
     Route: 065
     Dates: start: 2024, end: 2024
  10. THIOCTIC ACID [Concomitant]
     Active Substance: THIOCTIC ACID
     Indication: Type 2 diabetes mellitus
     Route: 042
     Dates: start: 2024, end: 2024

REACTIONS (2)
  - Hyperaemia [Recovering/Resolving]
  - Mass [Unknown]

NARRATIVE: CASE EVENT DATE: 20241106
